FAERS Safety Report 23337952 (Version 1)
Quarter: 2023Q4

REPORT INFORMATION
  Report Type: Spontaneous
  Country: US (occurrence: None)
  Receive Date: 20231222
  Receipt Date: 20231222
  Transmission Date: 20240109
  Serious: Yes (Hospitalization)
  Sender: FDA-Public Use
  Company Number: None

PATIENT
  Age: 4 Year
  Sex: Male
  Weight: 18.1 kg

DRUGS (3)
  1. DIVALPROEX SODIUM [Suspect]
     Active Substance: DIVALPROEX SODIUM
     Indication: Seizure
     Dosage: 250 MG TID J-UBE?
     Route: 050
     Dates: start: 20231117, end: 20231128
  2. EPIDIOLEX [Suspect]
     Active Substance: CANNABIDIOL
  3. TOPAMAX [Suspect]
     Active Substance: TOPIRAMATE

REACTIONS (5)
  - Acute hepatic failure [None]
  - Hyperammonaemia [None]
  - Nephrolithiasis [None]
  - Hepatotoxicity [None]
  - Therapy cessation [None]

NARRATIVE: CASE EVENT DATE: 20231128
